FAERS Safety Report 8881943 (Version 1)
Quarter: 2012Q4

REPORT INFORMATION
  Report Type: 
  Country: CA (occurrence: CA)
  Receive Date: 20121102
  Receipt Date: 20121102
  Transmission Date: 20130627
  Serious: Yes (Death, Hospitalization, Other)
  Sender: FDA-Public Use
  Company Number: PHHY2008CA18654

PATIENT
  Sex: Male

DRUGS (1)
  1. ZOMETA [Suspect]
     Indication: PROSTATE CANCER
     Dosage: 4 mg, UNK
     Route: 042
     Dates: start: 20080716

REACTIONS (16)
  - Prostate cancer [Fatal]
  - Bacteraemia [Unknown]
  - Clostridium difficile infection [Unknown]
  - Arrhythmia [Unknown]
  - Urinary tract infection [Unknown]
  - Cystitis [Unknown]
  - Metastasis [Unknown]
  - Metastases to spine [Unknown]
  - Metastases to neck [Unknown]
  - Pain [Unknown]
  - Blood creatinine decreased [Unknown]
  - Diarrhoea [Unknown]
  - Dehydration [Unknown]
  - Vomiting [Unknown]
  - Fatigue [Unknown]
  - Blood calcium decreased [Unknown]
